FAERS Safety Report 7374131-0 (Version None)
Quarter: 2011Q1

REPORT INFORMATION
  Report Type: 
  Country: None (occurrence: None)
  Receive Date: 20110325
  Receipt Date: 20110317
  Transmission Date: 20110831
  Serious: Yes (Other)
  Sender: FDA-Public Use
  Company Number: US-PFIZER INC-2010171727

PATIENT
  Sex: Female

DRUGS (2)
  1. ZOLOFT [Concomitant]
     Indication: DEPRESSION
     Dosage: UNK
     Dates: start: 20000101
  2. CHANTIX [Suspect]
     Indication: SMOKING CESSATION THERAPY
     Dosage: STARTER PACK
     Dates: start: 20080701, end: 20080801

REACTIONS (8)
  - THINKING ABNORMAL [None]
  - NIGHT SWEATS [None]
  - INSOMNIA [None]
  - DEPRESSION [None]
  - IRRITABILITY [None]
  - MEMORY IMPAIRMENT [None]
  - PARANOIA [None]
  - ANXIETY [None]
